FAERS Safety Report 6048185-8 (Version None)
Quarter: 2009Q1

REPORT INFORMATION
  Report Type: 
  Country: None (occurrence: None)
  Receive Date: 20090123
  Receipt Date: 20090115
  Transmission Date: 20090719
  Serious: Yes (Hospitalization)
  Sender: FDA-Public Use
  Company Number: US-AVENTIS-200910419US

PATIENT
  Age: 68 Year
  Sex: Female

DRUGS (4)
  1. TAXOTERE [Suspect]
     Dates: start: 20081103, end: 20081103
  2. TAXOTERE [Suspect]
     Dates: start: 20081124, end: 20081124
  3. MAXZIDE [Concomitant]
     Dosage: DOSE: UNK
  4. CALTRATE                           /00108001/ [Concomitant]
     Dosage: DOSE: UNK

REACTIONS (3)
  - DIAPHRAGMATIC PARALYSIS [None]
  - DYSPNOEA [None]
  - HYPOVENTILATION [None]
